FAERS Safety Report 6284767-6 (Version None)
Quarter: 2009Q3

REPORT INFORMATION
  Report Type: 
  Country: None (occurrence: None)
  Receive Date: 20090727
  Receipt Date: 20090722
  Transmission Date: 20100115
  Serious: Yes (Death)
  Sender: FDA-Public Use
  Company Number: PHEH2009US08059

PATIENT
  Sex: Male

DRUGS (1)
  1. NEORAL [Suspect]
     Indication: HEART TRANSPLANT
     Dosage: 50 MG, BID
     Route: 048
     Dates: start: 20080401

REACTIONS (1)
  - NEOPLASM MALIGNANT [None]
